FAERS Safety Report 24379686 (Version 1)
Quarter: 2024Q3

REPORT INFORMATION
  Report Type: Spontaneous
  Country: US (occurrence: US)
  Receive Date: 20240930
  Receipt Date: 20240930
  Transmission Date: 20241016
  Serious: Yes (Other)
  Sender: DR REDDYS
  Company Number: US-DRL-USA-LIT/USA/24/0014300

PATIENT
  Age: 51 Year
  Sex: Male

DRUGS (4)
  1. TOPIRAMATE [Suspect]
     Active Substance: TOPIRAMATE
     Indication: Papilloedema
     Dosage: 100 MG TWICE DAILY
  2. acetalozamide [Concomitant]
     Indication: Papilloedema
     Dosage: 1,000 MG TWICE DAILY
  3. PREDNISONE [Concomitant]
     Active Substance: PREDNISONE
     Indication: Behcet^s syndrome
     Dosage: 100 MG DAILY
     Route: 048
  4. ENOXAPARIN [Concomitant]
     Active Substance: ENOXAPARIN
     Indication: Cerebral venous sinus thrombosis
     Dosage: 100 MG DAILY

REACTIONS (1)
  - Drug ineffective for unapproved indication [Unknown]
